FAERS Safety Report 10486630 (Version 2)
Quarter: 2014Q4

REPORT INFORMATION
  Report Type: Spontaneous
  Country: US (occurrence: US)
  Receive Date: 20141001
  Receipt Date: 20141016
  Transmission Date: 20150528
  Serious: Yes (Hospitalization)
  Sender: FDA-Public Use
  Company Number: US-SUN PHARMACEUTICAL INDUSTRIES LTD-2014SUN02235

PATIENT
  Age: 31 Year
  Sex: Female
  Weight: 88 kg

DRUGS (7)
  1. TOPIRAMATE TABS 100MG [Suspect]
     Active Substance: TOPIRAMATE
     Indication: BIPOLAR DISORDER
     Dosage: 200 MG, QD, AT BEDTIME
     Route: 048
     Dates: start: 20140905, end: 20140919
  2. XANAX [Concomitant]
     Active Substance: ALPRAZOLAM
     Dosage: UNK
     Dates: start: 20140915, end: 20140921
  3. SENNA LAXATIVE [Concomitant]
     Active Substance: SENNOSIDES A AND B
     Indication: CONSTIPATION
     Dosage: 8.6 MG, TWO AT BEDTIME
  4. PROCARDIA XL [Concomitant]
     Active Substance: NIFEDIPINE
     Dosage: 30 MG, QD, IN MORNING
  5. KLONOPIN [Concomitant]
     Active Substance: CLONAZEPAM
     Dosage: UNK
     Dates: start: 20140922
  6. KLONOPIN [Concomitant]
     Active Substance: CLONAZEPAM
     Dosage: UNK
     Dates: end: 20140915
  7. TOPIRAMATE TABS 100MG [Suspect]
     Active Substance: TOPIRAMATE
     Indication: MIGRAINE

REACTIONS (2)
  - Feeling hot [Not Recovered/Not Resolved]
  - Anxiety [None]

NARRATIVE: CASE EVENT DATE: 20140919
